FAERS Safety Report 4806649-6 (Version None)
Quarter: 2005Q4

REPORT INFORMATION
  Report Type: 
  Country: None (occurrence: None)
  Receive Date: 20051019
  Receipt Date: 20050930
  Transmission Date: 20060501
  Serious: Yes (Other)
  Sender: FDA-Public Use
  Company Number: USA031049346

PATIENT
  Age: 81 Year
  Sex: Female

DRUGS (5)
  1. ZYPREXA [Suspect]
     Indication: ABNORMAL BEHAVIOUR
     Dosage: 7.5 MG DAY
     Dates: start: 20030201
  2. COUMADIN [Concomitant]
  3. DONEPEZIL HCL [Concomitant]
  4. LISINOPRIL [Concomitant]
  5. ACETAMINOPHEN [Concomitant]

REACTIONS (14)
  - AGITATION [None]
  - CORRECTIVE LENS USER [None]
  - DELIRIUM [None]
  - DIZZINESS [None]
  - DRUG INTOLERANCE [None]
  - ERYTHEMA [None]
  - FAECALOMA [None]
  - HYPOKALAEMIA [None]
  - LEUKOCYTOCLASTIC VASCULITIS [None]
  - OEDEMA [None]
  - RASH [None]
  - SKIN LESION [None]
  - THERAPY NON-RESPONDER [None]
  - URINARY TRACT DISORDER [None]
